FAERS Safety Report 13183233 (Version 1)
Quarter: 2017Q1

REPORT INFORMATION
  Report Type: Spontaneous
  Country: CA (occurrence: CA)
  Receive Date: 20170203
  Receipt Date: 20170203
  Transmission Date: 20170428
  Serious: Yes (Disabling)
  Sender: FDA-Public Use
  Company Number: CA-TEVA-735366ACC

PATIENT
  Age: 71 Year
  Sex: Male
  Weight: 76.27 kg

DRUGS (1)
  1. TEVA-IRBESARTAN [Suspect]
     Active Substance: IRBESARTAN
     Indication: HYPERTENSION
     Dosage: 150 MILLIGRAM DAILY;
     Route: 048

REACTIONS (5)
  - Anxiety [Recovered/Resolved]
  - Anger [Recovered/Resolved]
  - Depression [Recovered/Resolved]
  - Frustration tolerance decreased [Recovered/Resolved]
  - Feeling jittery [Recovered/Resolved]
